FAERS Safety Report 8459893-3 (Version None)
Quarter: 2012Q2

REPORT INFORMATION
  Report Type: 
  Country: None (occurrence: None)
  Receive Date: 20120622
  Receipt Date: 20120615
  Transmission Date: 20120825
  Serious: Yes (Hospitalization)
  Sender: FDA-Public Use
  Company Number: PHHY2011TW109514

PATIENT
  Age: 19 Year
  Sex: Male

DRUGS (1)
  1. RITALIN [Suspect]
     Dosage: UNK UKN, UNK

REACTIONS (3)
  - PLATELET COUNT DECREASED [None]
  - HAEMORRHAGE [None]
  - APLASTIC ANAEMIA [None]
